FAERS Safety Report 6802109-1 (Version None)
Quarter: 2010Q2

REPORT INFORMATION
  Report Type: 
  Country: None (occurrence: None)
  Receive Date: 20100629
  Receipt Date: 20080209
  Transmission Date: 20101027
  Serious: No
  Sender: FDA-Public Use
  Company Number: US-PFIZER INC-2007060676

PATIENT
  Sex: Female
  Weight: 70 kg

DRUGS (3)
  1. ARTHROTEC [Suspect]
     Indication: PAIN
     Route: 048
     Dates: start: 20070718, end: 20070719
  2. SEROQUEL [Concomitant]
  3. XANAX [Concomitant]

REACTIONS (4)
  - ABDOMINAL DISCOMFORT [None]
  - DIZZINESS [None]
  - DRUG INEFFECTIVE [None]
  - MALAISE [None]
